FAERS Safety Report 17401653 (Version 2)
Quarter: 2020Q2

REPORT INFORMATION
  Report Type: Spontaneous
  Country: BG (occurrence: BG)
  Receive Date: 20200211
  Receipt Date: 20200422
  Transmission Date: 20200713
  Serious: No
  Sender: FDA-Public Use
  Company Number: BG-MYLANLABS-2020M1014442

PATIENT
  Age: 8 Decade
  Sex: Female

DRUGS (4)
  1. RYTMONORM 150 [Suspect]
     Active Substance: PROPAFENONE HYDROCHLORIDE
     Dosage: 600 MILLIGRAM, TWO TABLETS TWICE PER DAY
     Route: 048
     Dates: start: 202001, end: 20200131
  2. RYTMONORM 150 [Suspect]
     Active Substance: PROPAFENONE HYDROCHLORIDE
     Indication: EXTRASYSTOLES
     Dosage: 150 MILLIGRAM, ONE TABLET TWICE PER DAY
     Route: 048
  3. RYTMONORM 150 [Suspect]
     Active Substance: PROPAFENONE HYDROCHLORIDE
     Dosage: 150 MILLIGRAM, QD 1 TABLET IN THE EVENING
     Route: 048
     Dates: start: 20200215
  4. MAGNESIUM [Concomitant]
     Active Substance: MAGNESIUM
     Indication: EXTRASYSTOLES
     Dosage: UNK
     Route: 048
     Dates: start: 202001

REACTIONS (4)
  - Off label use [Unknown]
  - Drug ineffective [Unknown]
  - Prescribed underdose [Unknown]
  - White blood cell count decreased [Recovered/Resolved]

NARRATIVE: CASE EVENT DATE: 20200202
